FAERS Safety Report 16251560 (Version 1)
Quarter: 2019Q2

REPORT INFORMATION
  Report Type: Spontaneous
  Country: US (occurrence: US)
  Receive Date: 20190427
  Receipt Date: 20190427
  Transmission Date: 20190711
  Serious: Yes (Disabling)
  Sender: FDA-Public Use
  Company Number: None

PATIENT
  Age: 62 Year
  Sex: Female
  Weight: 76.5 kg

DRUGS (1)
  1. LOVASTATIN. [Suspect]
     Active Substance: LOVASTATIN

REACTIONS (2)
  - Asthenia [None]
  - Quality of life decreased [None]
